FAERS Safety Report 8401442-X (Version None)
Quarter: 2012Q2

REPORT INFORMATION
  Report Type: 
  Country: None (occurrence: None)
  Receive Date: 20120601
  Receipt Date: 20120526
  Transmission Date: 20120825
  Serious: No
  Sender: FDA-Public Use
  Company Number: US-PFIZER INC-2012127338

PATIENT
  Sex: Female
  Weight: 8.163 kg

DRUGS (3)
  1. ACETAMINOPHEN [Concomitant]
     Indication: PYREXIA
     Dosage: UNK, AS NEEDED
  2. ACETAMINOPHEN [Concomitant]
     Indication: SNEEZING
  3. PEDIATRIC ADVIL [Suspect]
     Indication: PYREXIA
     Dosage: UNK, 2X/DAY
     Dates: end: 20120527

REACTIONS (1)
  - URTICARIA [None]
